FAERS Safety Report 6702779-2 (Version None)
Quarter: 2010Q2

REPORT INFORMATION
  Report Type: 
  Country: None (occurrence: None)
  Receive Date: 20100429
  Receipt Date: 20100416
  Transmission Date: 20101027
  Serious: Yes (Other)
  Sender: FDA-Public Use
  Company Number: US-ELI_LILLY_AND_COMPANY-US201004006348

PATIENT
  Sex: Female

DRUGS (14)
  1. FORTEO [Suspect]
     Indication: OSTEOPOROSIS
     Dosage: 20 UG, DAILY (1/D)
     Dates: start: 20090501, end: 20100323
  2. FORTEO [Suspect]
     Dosage: 20 UG, DAILY (1/D)
     Dates: start: 20100405
  3. PREDNISONE [Concomitant]
     Dosage: 7 MG, DAILY (1/D)
  4. PLAQUENIL /00072601/ [Concomitant]
     Dosage: 200 MG, 2/D
  5. SINGULAIR [Concomitant]
     Dosage: 10 MG, DAILY (1/D)
  6. XOPENEX [Concomitant]
     Dosage: 1 D/F, 2/D
  7. IPRATROPIUM [Concomitant]
     Dosage: 1 D/F, DAILY (1/D)
  8. PULMICORT [Concomitant]
     Dosage: 1 D/F, DAILY (1/D)
  9. CALCIUM W/VITAMIN D NOS [Concomitant]
     Dosage: 1500 MG, DAILY (1/D)
  10. MULTI-VITAMIN [Concomitant]
  11. TYLENOL (CAPLET) [Concomitant]
     Dosage: 650 MG, 2/D
  12. MAXZIDE [Concomitant]
  13. SKELAXIN [Concomitant]
  14. PRILOSEC [Concomitant]
     Dosage: 40 MG, 2/D

REACTIONS (17)
  - ABDOMINAL PAIN [None]
  - ACTIVITIES OF DAILY LIVING IMPAIRED [None]
  - ASTHENIA [None]
  - BALANCE DISORDER [None]
  - COLD SWEAT [None]
  - DIARRHOEA [None]
  - DIZZINESS [None]
  - FATIGUE [None]
  - FEELING ABNORMAL [None]
  - GAIT DISTURBANCE [None]
  - HYPERHIDROSIS [None]
  - MOVEMENT DISORDER [None]
  - MUSCULAR WEAKNESS [None]
  - NAUSEA [None]
  - THINKING ABNORMAL [None]
  - TREMOR [None]
  - VISUAL IMPAIRMENT [None]
